FAERS Safety Report 6413057-3 (Version None)
Quarter: 2009Q4

REPORT INFORMATION
  Report Type: 
  Country: None (occurrence: None)
  Receive Date: 20091023
  Receipt Date: 20091023
  Transmission Date: 20100525
  Serious: Yes (Hospitalization)
  Sender: FDA-Public Use
  Company Number: None

PATIENT
  Sex: Male
  Weight: 113.8 kg

DRUGS (3)
  1. TAXOTERE [Suspect]
     Dosage: 150 MG
  2. GLIPIZIDE [Concomitant]
  3. STERIODS [Concomitant]

REACTIONS (10)
  - ATELECTASIS [None]
  - CHILLS [None]
  - COUGH [None]
  - LUNG INFILTRATION [None]
  - NASOPHARYNGITIS [None]
  - NIGHT SWEATS [None]
  - PULMONARY FIBROSIS [None]
  - PYREXIA [None]
  - RESPIRATORY RATE INCREASED [None]
  - RHONCHI [None]
